FAERS Safety Report 16064545 (Version 1)
Quarter: 2019Q1

REPORT INFORMATION
  Report Type: Spontaneous
  Country: None (occurrence: US)
  Receive Date: 20190312
  Receipt Date: 20190312
  Transmission Date: 20190418
  Serious: Yes (Hospitalization)
  Sender: FDA-Public Use
  Company Number: US-MEDAC PHARMA, INC.-2063902

PATIENT
  Sex: Male
  Weight: 67.7 kg

DRUGS (6)
  1. DAUNORUBICIN HYDROCHLORIDE. [Suspect]
     Active Substance: DAUNORUBICIN HYDROCHLORIDE
  2. ONCASPAR [Suspect]
     Active Substance: PEGASPARGASE
  3. VINCRISTINE SULFATE. [Suspect]
     Active Substance: VINCRISTINE SULFATE
  4. METHOTREXATE. [Suspect]
     Active Substance: METHOTREXATE
  5. CYTARABINE. [Suspect]
     Active Substance: CYTARABINE
  6. PREDNISONE. [Suspect]
     Active Substance: PREDNISONE

REACTIONS (4)
  - Pyrexia [Unknown]
  - Tachycardia [Unknown]
  - Nausea [Unknown]
  - Dizziness [Unknown]

NARRATIVE: CASE EVENT DATE: 20181012
